FAERS Safety Report 4640535-X (Version None)
Quarter: 2005Q2

REPORT INFORMATION
  Report Type: 
  Country: None (occurrence: None)
  Receive Date: 20050420
  Receipt Date: 20050413
  Transmission Date: 20051028
  Serious: Yes (Other)
  Sender: FDA-Public Use
  Company Number: PHBS2005BR05278

PATIENT
  Age: 25 Year
  Sex: Female

DRUGS (1)
  1. METHERGINE [Suspect]
     Indication: ABDOMINAL PAIN

REACTIONS (4)
  - ABORTION [None]
  - DRUG EXPOSURE DURING PREGNANCY [None]
  - FEELING ABNORMAL [None]
  - PREMATURE SEPARATION OF PLACENTA [None]
